FAERS Safety Report 6467119-5 (Version None)
Quarter: 2009Q4

REPORT INFORMATION
  Report Type: 
  Country: None (occurrence: None)
  Receive Date: 20091202
  Receipt Date: 20091123
  Transmission Date: 20100525
  Serious: Yes (Hospitalization)
  Sender: FDA-Public Use
  Company Number: BR-PFIZER INC-2009279104

PATIENT
  Age: 4 Year
  Sex: Male
  Weight: 26 kg

DRUGS (2)
  1. FRADEMICINA [Suspect]
     Indication: OROPHARYNGEAL PAIN
     Dosage: 300 MG, 1X/DAY
     Dates: start: 20091005, end: 20091001
  2. NOVALGINA [Concomitant]
     Indication: PYREXIA
     Dosage: UNK

REACTIONS (6)
  - FATIGUE [None]
  - LISTLESS [None]
  - PLEURAL EFFUSION [None]
  - PNEUMONIA [None]
  - PYREXIA [None]
  - SOMNOLENCE [None]
